FAERS Safety Report 7225310-4 (Version None)
Quarter: 2011Q1

REPORT INFORMATION
  Report Type: 
  Country: None (occurrence: None)
  Receive Date: 20110113
  Receipt Date: 20110105
  Transmission Date: 20110831
  Serious: Yes (Other)
  Sender: FDA-Public Use
  Company Number: US-US-EMD SERONO, INC.-7029476

PATIENT
  Sex: Female

DRUGS (3)
  1. REBIF [Suspect]
     Route: 058
     Dates: start: 20101101
  2. REBIF [Suspect]
     Route: 058
     Dates: start: 20100201, end: 20101001
  3. REBIF [Suspect]
     Indication: MULTIPLE SCLEROSIS
     Route: 058

REACTIONS (6)
  - PNEUMONIA [None]
  - SINUSITIS [None]
  - INJECTION SITE ERYTHEMA [None]
  - EAR INFECTION [None]
  - INFLUENZA LIKE ILLNESS [None]
  - BRONCHITIS [None]
